FAERS Safety Report 8597726-5 (Version None)
Quarter: 2012Q3

REPORT INFORMATION
  Report Type: 
  Country: None (occurrence: None)
  Receive Date: 20120816
  Receipt Date: 20120810
  Transmission Date: 20120928
  Serious: Yes (Other)
  Sender: FDA-Public Use
  Company Number: PHEH2012US013690

PATIENT
  Sex: Female

DRUGS (4)
  1. NORVASC [Concomitant]
     Dosage: 2.5 MG, DAILY
  2. LOPRESSOR [Suspect]
     Dosage: 50 MG, QID
  3. METOPROLOL TARTRATE [Concomitant]
     Dosage: 50 MG, TID
  4. COZAAR [Concomitant]
     Dosage: 100 MG, DAILY

REACTIONS (2)
  - BLOOD PRESSURE INCREASED [None]
  - DISSECTING CORONARY ARTERY ANEURYSM [None]
